FAERS Safety Report 19829411 (Version 1)
Quarter: 2021Q3

REPORT INFORMATION
  Report Type: Spontaneous
  Country: US (occurrence: US)
  Receive Date: 20210914
  Receipt Date: 20210914
  Transmission Date: 20211014
  Serious: No
  Sender: FDA-Public Use
  Company Number: None

PATIENT
  Sex: Male

DRUGS (1)
  1. EVEROLIMUS 5MG BRECKENRIDGE [Suspect]
     Active Substance: EVEROLIMUS
     Route: 048
     Dates: start: 202104

REACTIONS (1)
  - Emergency care [None]
